FAERS Safety Report 18087202 (Version 1)
Quarter: 2020Q3

REPORT INFORMATION
  Report Type: Spontaneous
  Country: US (occurrence: US)
  Receive Date: 20200728
  Receipt Date: 20200728
  Transmission Date: 20201103
  Serious: Yes (Hospitalization)
  Sender: FDA-Public Use
  Company Number: None

PATIENT
  Sex: Male

DRUGS (17)
  1. ALBUTEROL NEB [Concomitant]
     Active Substance: ALBUTEROL
  2. FENOFIBRIC [Concomitant]
     Active Substance: FENOFIBRIC ACID
  3. JANUVIA [Concomitant]
     Active Substance: SITAGLIPTIN PHOSPHATE
  4. ONDANSETRON [Concomitant]
     Active Substance: ONDANSETRON
  5. LOTEMAX [Concomitant]
     Active Substance: LOTEPREDNOL ETABONATE
  6. METOPROLOL TAR [Concomitant]
     Active Substance: METOPROLOL TARTRATE
  7. MICARDIS [Concomitant]
     Active Substance: TELMISARTAN
  8. INLYTA [Suspect]
     Active Substance: AXITINIB
     Indication: RENAL CANCER
     Route: 048
     Dates: start: 20200717
  9. MELATONIN [Concomitant]
     Active Substance: MELATONIN
  10. TEMAZEPAM. [Concomitant]
     Active Substance: TEMAZEPAM
  11. TRESIBA FLEX [Concomitant]
  12. DICYCLOMINE [Concomitant]
     Active Substance: DICYCLOMINE HYDROCHLORIDE
  13. LOVAZA [Concomitant]
     Active Substance: OMEGA-3-ACID ETHYL ESTERS
  14. ATORVASTATIN [Concomitant]
     Active Substance: ATORVASTATIN
  15. OCUVITE [Concomitant]
     Active Substance: VITAMINS
  16. NOVOLOG FLEXPIN [Concomitant]
  17. REFRESH OPTI DRO [Concomitant]

REACTIONS (1)
  - Hospitalisation [None]
